FAERS Safety Report 8219850-9 (Version None)
Quarter: 2012Q1

REPORT INFORMATION
  Report Type: 
  Country: None (occurrence: None)
  Receive Date: 20120319
  Receipt Date: 20120308
  Transmission Date: 20120608
  Serious: Yes (Other)
  Sender: FDA-Public Use
  Company Number: US-ASTRAZENECA-2012SE10549

PATIENT
  Age: 61 Year
  Sex: Female

DRUGS (5)
  1. NEXIUM [Suspect]
     Route: 048
  2. PEPCID [Concomitant]
  3. ZANTAC [Concomitant]
  4. LIPITOR [Concomitant]
  5. CRESTOR [Concomitant]

REACTIONS (4)
  - MUSCLE DISORDER [None]
  - TENDON RUPTURE [None]
  - MUSCULAR WEAKNESS [None]
  - GASTROOESOPHAGEAL REFLUX DISEASE [None]
